FAERS Safety Report 10408681 (Version 1)
Quarter: 2014Q3

REPORT INFORMATION
  Report Type: Spontaneous
  Country: US (occurrence: US)
  Receive Date: 20140826
  Receipt Date: 20140826
  Transmission Date: 20150326
  Serious: Yes (Hospitalization)
  Sender: FDA-Public Use
  Company Number: US-SUN PHARMACEUTICAL INDUSTRIES LTD-2014SUN01899

PATIENT
  Age: 67 Year
  Sex: Male

DRUGS (7)
  1. TRAMADOL HYDROCHLORIDE. [Suspect]
     Active Substance: TRAMADOL HYDROCHLORIDE
     Indication: ANALGESIC THERAPY
     Dosage: 100 MG, TID
     Route: 048
  2. AMANTADINE [Concomitant]
     Active Substance: AMANTADINE
     Dosage: 200 MG, DAILY
     Route: 048
  3. CLOZAPINE. [Concomitant]
     Active Substance: CLOZAPINE
     Dosage: 25 MG, DAILY
     Route: 048
  4. ZIPRASIDONE [Interacting]
     Active Substance: ZIPRASIDONE
     Indication: HALLUCINATION
     Dosage: 20 MG, DAILY
     Route: 048
  5. RASAGILINE [Interacting]
     Active Substance: RASAGILINE
     Indication: PRODUCT USED FOR UNKNOWN INDICATION
     Dosage: 1 MG, DAILY
     Route: 065
  6. CARBIDOPA/LEVODOPA [Concomitant]
     Active Substance: CARBIDOPA\LEVODOPA
     Dosage: 25/100 MG, FOUR TIMES DAILY
  7. DEPAKOTE [Concomitant]
     Active Substance: DIVALPROEX SODIUM
     Dosage: 1.25 G, DAILY
     Route: 048

REACTIONS (2)
  - Serotonin syndrome [Unknown]
  - Drug interaction [Unknown]
